FAERS Safety Report 24797521 (Version 1)
Quarter: 2025Q1

REPORT INFORMATION
  Report Type: Spontaneous
  Country: CZ (occurrence: CZ)
  Receive Date: 20250102
  Receipt Date: 20250102
  Transmission Date: 20250409
  Serious: Yes (Hospitalization, Other)
  Sender: EMD SERONO INC
  Company Number: None

PATIENT
  Age: 61 Year
  Sex: Male
  Weight: 107 kg

DRUGS (5)
  1. BAVENCIO [Suspect]
     Active Substance: AVELUMAB
     Indication: Bladder cancer
     Dates: start: 20240612, end: 20240821
  2. LIPERTANCE [Concomitant]
     Indication: Hypertension
     Dosage: 1-0-0
  3. LIPERTANCE [Concomitant]
     Indication: Dyslipidaemia
  4. EDOXABAN TOSYLATE [Concomitant]
     Active Substance: EDOXABAN TOSYLATE
     Indication: Deep vein thrombosis
     Dosage: DOSE 1-0-0, DISCONTINUED LATER FOR ANOTHER REASON (PERIOPERATIVE LOW MOLECULAR WEIGHT HEPARIN)
     Dates: start: 202405, end: 20241015
  5. EDOXABAN TOSYLATE [Concomitant]
     Active Substance: EDOXABAN TOSYLATE
     Indication: Pulmonary embolism

REACTIONS (2)
  - Immune-mediated neuropathy [Not Recovered/Not Resolved]
  - Condition aggravated [Not Recovered/Not Resolved]

NARRATIVE: CASE EVENT DATE: 20240801
